FAERS Safety Report 5228465-6 (Version None)
Quarter: 2007Q1

REPORT INFORMATION
  Report Type: 
  Country: None (occurrence: None)
  Receive Date: 20070131
  Receipt Date: 20070116
  Transmission Date: 20070707
  Serious: Yes (Death, Hospitalization)
  Sender: FDA-Public Use
  Company Number: 233077

PATIENT
  Age: 74 Year
  Sex: Female

DRUGS (5)
  1. AVASTIN [Suspect]
     Indication: COLORECTAL CANCER METASTATIC
     Dosage: 7.5 MG/KG, Q3W, INTRAVENOUS
     Route: 042
     Dates: start: 20060512
  2. CAPECITABINE (CAPECITABINE) [Suspect]
     Indication: COLORECTAL CANCER METASTATIC
     Dosage: 2000 MG/M2, QD, ORAL
     Route: 048
     Dates: start: 20060512
  3. MITOMYCIN [Suspect]
     Indication: COLORECTAL CANCER METASTATIC
     Dosage: 7 MG/M2, Q6W, INTRAVENOUS
     Route: 042
     Dates: start: 20060512
  4. TAMBOCOR [Concomitant]
  5. ACETAMINOPHEN [Concomitant]

REACTIONS (4)
  - FALL [None]
  - INFECTION [None]
  - JOINT INJURY [None]
  - SOFT TISSUE INJURY [None]
